FAERS Safety Report 7023163-0 (Version None)
Quarter: 2010Q3

REPORT INFORMATION
  Report Type: 
  Country: None (occurrence: None)
  Receive Date: 20100930
  Receipt Date: 20100916
  Transmission Date: 20110219
  Serious: Yes (Hospitalization)
  Sender: FDA-Public Use
  Company Number: US-ELI_LILLY_AND_COMPANY-US201009004270

PATIENT
  Sex: Female
  Weight: 46.2 kg

DRUGS (7)
  1. TERIPARATIDE [Suspect]
     Indication: OSTEOPOROSIS
     Dosage: 20 UG, DAILY (1/D)
     Route: 058
     Dates: start: 20060901, end: 20080901
  2. BONIVA [Concomitant]
     Indication: OSTEOPOROSIS
     Dates: start: 20081201
  3. LEXAPRO [Concomitant]
     Indication: DEPRESSION
     Dates: start: 20060101
  4. KLONOPIN [Concomitant]
     Indication: ANXIETY
     Dates: start: 20060101
  5. LIPITOR [Concomitant]
     Indication: HYPERLIPIDAEMIA
     Dates: start: 20060101
  6. CALCIUM [Concomitant]
     Indication: SUPPLEMENTATION THERAPY
     Dates: start: 19850101
  7. VITAMIN D [Concomitant]
     Indication: SUPPLEMENTATION THERAPY
     Dates: start: 19950101

REACTIONS (3)
  - PELVIC FRACTURE [None]
  - SUBDURAL HAEMATOMA [None]
  - UPPER LIMB FRACTURE [None]
